FAERS Safety Report 5470896-3 (Version None)
Quarter: 2007Q3

REPORT INFORMATION
  Report Type: 
  Country: None (occurrence: None)
  Receive Date: 20070928
  Receipt Date: 20070926
  Transmission Date: 20080115
  Serious: Yes (Death, Hospitalization)
  Sender: FDA-Public Use
  Company Number: US-BRISTOL-MYERS SQUIBB COMPANY-13863568

PATIENT
  Age: 54 Year
  Sex: Male

DRUGS (6)
  1. CEFEPIME [Suspect]
     Indication: FEBRILE NEUTROPENIA
  2. PHENYTOIN [Suspect]
     Indication: STATUS EPILEPTICUS
  3. PHENOBARBITAL TAB [Suspect]
  4. VANCOMYCIN [Suspect]
  5. MERONEM [Concomitant]
  6. PIPERACILLIN AND TAZOBACTAM [Concomitant]

REACTIONS (2)
  - SEPTIC SHOCK [None]
  - STATUS EPILEPTICUS [None]
